FAERS Safety Report 13608582 (Version 1)
Quarter: 2017Q2

REPORT INFORMATION
  Report Type: Report from Study
  Country: BF (occurrence: BF)
  Receive Date: 20170602
  Receipt Date: 20170602
  Transmission Date: 20170830
  Serious: Yes (Death)
  Sender: FDA-Public Use
  Company Number: PHHY2017BF080507

PATIENT
  Sex: Male

DRUGS (1)
  1. GLIVEC [Suspect]
     Active Substance: IMATINIB MESYLATE
     Indication: CHRONIC MYELOID LEUKAEMIA
     Dosage: 400 MG, UNK
     Route: 065

REACTIONS (6)
  - Myelocytosis [Fatal]
  - Meningeal disorder [Fatal]
  - Lymphadenopathy [Fatal]
  - Respiratory distress [Fatal]
  - Leukocytosis [Fatal]
  - Splenomegaly [Fatal]
